FAERS Safety Report 17881112 (Version 1)
Quarter: 2020Q2

REPORT INFORMATION
  Report Type: Spontaneous
  Country: CN (occurrence: CN)
  Receive Date: 20200610
  Receipt Date: 20200610
  Transmission Date: 20200714
  Serious: Yes (Other)
  Sender: FDA-Public Use
  Company Number: CN-PFIZER INC-2020225895

PATIENT
  Age: 91 Year
  Sex: Male

DRUGS (2)
  1. SOLU-MEDROL [Suspect]
     Active Substance: METHYLPREDNISOLONE SODIUM SUCCINATE
     Indication: INFLAMMATION
     Dosage: 80 MG, 1X/DAY
     Route: 041
     Dates: start: 20200529, end: 20200602
  2. SOLU-MEDROL [Suspect]
     Active Substance: METHYLPREDNISOLONE SODIUM SUCCINATE
     Indication: EFFUSION

REACTIONS (3)
  - Anaemia [Recovering/Resolving]
  - Tachypnoea [Recovering/Resolving]
  - Lower gastrointestinal haemorrhage [Recovering/Resolving]

NARRATIVE: CASE EVENT DATE: 20200602
